FAERS Safety Report 16869216 (Version 1)
Quarter: 2019Q3

REPORT INFORMATION
  Report Type: Report from Study
  Country: ES (occurrence: ES)
  Receive Date: 20190930
  Receipt Date: 20190930
  Transmission Date: 20191005
  Serious: Yes (Hospitalization)
  Sender: FDA-Public Use
  Company Number: ES-MYLANLABS-2019M1089661

PATIENT
  Age: 85 Year
  Sex: Male

DRUGS (46)
  1. QUETIAPINE. [Concomitant]
     Active Substance: QUETIAPINE
  2. PREDNISONE. [Concomitant]
     Active Substance: PREDNISONE
  3. CEFAZOLINE                         /00288501/ [Concomitant]
     Active Substance: CEFAZOLIN
  4. MEGESTROL [Concomitant]
     Active Substance: MEGESTROL
  5. NIFEDIPINE. [Concomitant]
     Active Substance: NIFEDIPINE
  6. CITALOPRAM [Concomitant]
     Active Substance: CITALOPRAM HYDROBROMIDE
  7. HALOPERIDOL. [Concomitant]
     Active Substance: HALOPERIDOL
  8. VALGANCICLOVIR. [Concomitant]
     Active Substance: VALGANCICLOVIR
  9. FUROSEMIDE. [Concomitant]
     Active Substance: FUROSEMIDE
  10. CALCIUM CARBONATE. [Concomitant]
     Active Substance: CALCIUM CARBONATE
  11. RISPERIDONE. [Concomitant]
     Active Substance: RISPERIDONE
  12. ACETYLSALICYLIC ACID [Concomitant]
     Active Substance: ASPIRIN
  13. ONDANSETRON [Concomitant]
     Active Substance: ONDANSETRON
  14. BASILIXIMAB [Concomitant]
     Active Substance: BASILIXIMAB
  15. EBASTINE [Concomitant]
     Active Substance: EBASTINE
  16. PANTOPRAZOLE [Concomitant]
     Active Substance: PANTOPRAZOLE
  17. LOPERAMIDE [Concomitant]
     Active Substance: LOPERAMIDE
  18. ALLOPURINOL. [Concomitant]
     Active Substance: ALLOPURINOL
  19. OMEPRAZOL                          /00661201/ [Concomitant]
     Active Substance: OMEPRAZOLE
  20. METOCLOPRAMIDE. [Concomitant]
     Active Substance: METOCLOPRAMIDE
  21. ERTAPENEM. [Concomitant]
     Active Substance: ERTAPENEM SODIUM
  22. GABAPENTINE [Concomitant]
     Active Substance: GABAPENTIN
  23. PARACETAMOL [Concomitant]
     Active Substance: ACETAMINOPHEN
  24. TAMSULOSIN [Concomitant]
     Active Substance: TAMSULOSIN
  25. LEVOTHYROXINE. [Concomitant]
     Active Substance: LEVOTHYROXINE
  26. BIMATOPROST. [Concomitant]
     Active Substance: BIMATOPROST
  27. CALCITRIOL. [Concomitant]
     Active Substance: CALCITRIOL
  28. LACTOBACILLUS [Concomitant]
     Active Substance: LACTOBACILLUS ACIDOPHILUS
  29. TACROLIMUS. [Concomitant]
     Active Substance: TACROLIMUS
  30. DARBEPOETIN ALFA [Concomitant]
     Active Substance: DARBEPOETIN ALFA
  31. FOLIC ACID. [Concomitant]
     Active Substance: FOLIC ACID
  32. CIPROFLOXACIN. [Concomitant]
     Active Substance: CIPROFLOXACIN
  33. METHYLPREDNISOLONE. [Concomitant]
     Active Substance: METHYLPREDNISOLONE
  34. IPRATROPIUM BROMIDE. [Concomitant]
     Active Substance: IPRATROPIUM BROMIDE
  35. COTRIMOXAZOLE [Concomitant]
     Active Substance: SULFAMETHOXAZOLE\TRIMETHOPRIM
  36. SODIUM HYDROGEN CARBONATE [Concomitant]
     Active Substance: SODIUM BICARBONATE
  37. MYCOPHENOLATE MOFETIL. [Suspect]
     Active Substance: MYCOPHENOLATE MOFETIL
     Indication: RENAL TRANSPLANT
     Dosage: UNK
     Route: 065
  38. ENOXAPARIN [Concomitant]
     Active Substance: ENOXAPARIN
  39. SALBUTAMOL [Concomitant]
     Active Substance: ALBUTEROL
  40. SIMVASTATIN. [Concomitant]
     Active Substance: SIMVASTATIN
  41. HYDROCORTISONE. [Concomitant]
     Active Substance: HYDROCORTISONE
  42. CEFTAZIDIME. [Concomitant]
     Active Substance: CEFTAZIDIME
  43. ADIRO [Concomitant]
     Active Substance: ASPIRIN
  44. TRAMADOL. [Concomitant]
     Active Substance: TRAMADOL
  45. METAMIZOLE [Concomitant]
     Active Substance: METAMIZOLE
  46. LACTULOSE. [Concomitant]
     Active Substance: LACTULOSE

REACTIONS (1)
  - Delayed graft function [Recovered/Resolved]

NARRATIVE: CASE EVENT DATE: 20161014
